FAERS Safety Report 6340010-0 (Version None)
Quarter: 2009Q3

REPORT INFORMATION
  Report Type: 
  Country: None (occurrence: None)
  Receive Date: 20090903
  Receipt Date: 20090824
  Transmission Date: 20100115
  Serious: Yes (Death, Other)
  Sender: FDA-Public Use
  Company Number: US-BAXTER-2009BH011758

PATIENT
  Age: 74 Year
  Sex: Male

DRUGS (7)
  1. HEPARIN SODIUM INJECTION [Suspect]
     Indication: DRUG USE FOR UNKNOWN INDICATION
     Route: 042
     Dates: start: 20070723, end: 20070728
  2. HEPARIN SODIUM INJECTION [Suspect]
     Indication: CARDIAC OPERATION
     Route: 042
     Dates: start: 20070723, end: 20070728
  3. LOTREL [Concomitant]
     Indication: DRUG USE FOR UNKNOWN INDICATION
     Route: 065
  4. ASPIRIN [Concomitant]
     Indication: DRUG USE FOR UNKNOWN INDICATION
     Route: 065
  5. PLAVIX [Concomitant]
     Indication: DRUG USE FOR UNKNOWN INDICATION
     Route: 065
  6. VYTORIN [Concomitant]
     Indication: DRUG USE FOR UNKNOWN INDICATION
     Route: 065
  7. FERROUS SULFATE TAB [Concomitant]
     Indication: DRUG USE FOR UNKNOWN INDICATION
     Route: 065

REACTIONS (20)
  - CARDIAC PROCEDURE COMPLICATION [None]
  - CAROTID ARTERY DISEASE [None]
  - CATHETER SITE HAEMORRHAGE [None]
  - CHRONIC OBSTRUCTIVE PULMONARY DISEASE [None]
  - CORONARY ARTERY DISEASE [None]
  - DISSEMINATED INTRAVASCULAR COAGULATION [None]
  - EPISTAXIS [None]
  - GASTROINTESTINAL HAEMORRHAGE [None]
  - GENERAL PHYSICAL HEALTH DETERIORATION [None]
  - HAEMATOCHEZIA [None]
  - HAEMOPTYSIS [None]
  - HEPARIN-INDUCED THROMBOCYTOPENIA [None]
  - HYPERLIPIDAEMIA [None]
  - HYPOTENSION [None]
  - ISCHAEMIA [None]
  - MOUTH HAEMORRHAGE [None]
  - PERIPHERAL VASCULAR DISORDER [None]
  - PLATELET COUNT DECREASED [None]
  - RENAL FAILURE ACUTE [None]
  - RESPIRATORY DISTRESS [None]
